FAERS Safety Report 5036370-3 (Version None)
Quarter: 2006Q2

REPORT INFORMATION
  Report Type: 
  Country: None (occurrence: None)
  Receive Date: 20060601
  Receipt Date: 20060418
  Transmission Date: 20061013
  Serious: No
  Sender: FDA-Public Use
  Company Number: US200604002930

PATIENT

DRUGS (1)
  1. CYMBALTA [Suspect]
     Indication: FIBROMYALGIA
     Dosage: 60 MG
     Dates: start: 20030321, end: 20060321

REACTIONS (12)
  - ANOREXIA [None]
  - ANXIETY [None]
  - DIARRHOEA [None]
  - DIZZINESS [None]
  - DYSURIA [None]
  - FEELING ABNORMAL [None]
  - FLUID INTAKE REDUCED [None]
  - MALAISE [None]
  - NAUSEA [None]
  - SLEEP DISORDER [None]
  - TREMOR [None]
  - VOMITING [None]
